FAERS Safety Report 23766279 (Version 2)
Quarter: 2025Q1

REPORT INFORMATION
  Report Type: Report from Study
  Country: KR (occurrence: KR)
  Receive Date: 20240422
  Receipt Date: 20250219
  Transmission Date: 20250409
  Serious: Yes (Hospitalization)
  Sender: ABBVIE
  Company Number: KR-ABBVIE-5724495

PATIENT
  Age: 87 Year
  Sex: Male
  Weight: 76 kg

DRUGS (21)
  1. VENCLEXTA [Suspect]
     Active Substance: VENETOCLAX
     Indication: Acute myeloid leukaemia
     Route: 048
     Dates: start: 20240228, end: 20240314
  2. VENCLEXTA [Suspect]
     Active Substance: VENETOCLAX
     Indication: Acute myeloid leukaemia
     Route: 048
     Dates: start: 20240418, end: 20240502
  3. Boryung fen [Concomitant]
     Indication: Product used for unknown indication
     Route: 055
     Dates: start: 20240408
  4. CODEINE [Concomitant]
     Active Substance: CODEINE
     Indication: Pain prophylaxis
     Route: 048
  5. LORAZEPAM [Concomitant]
     Active Substance: LORAZEPAM
     Indication: Panic disorder
     Dosage: 0.5MG
     Route: 048
  6. Levopride [Concomitant]
     Indication: Dyspepsia
     Route: 048
     Dates: start: 202402
  7. ROVETIN [Concomitant]
     Indication: Coronary artery disease
     Dosage: 5MG
     Route: 048
  8. LODIEN [Concomitant]
     Indication: Hypertension
     Dosage: 2.5MG
     Route: 048
     Dates: start: 20240303, end: 20240303
  9. LODIEN [Concomitant]
     Indication: Hypertension
     Dosage: 2.5MG
     Route: 048
     Dates: end: 20240302
  10. FINASTERIDE [Concomitant]
     Active Substance: FINASTERIDE
     Indication: Panic disorder
     Dosage: 5MG
     Route: 048
     Dates: end: 20240328
  11. HARNAL [Concomitant]
     Active Substance: TAMSULOSIN HYDROCHLORIDE
     Indication: Panic disorder
     Dosage: 0.2MG
     Route: 048
     Dates: end: 20240328
  12. EZET [Concomitant]
     Indication: Coronary artery disease
     Dosage: 10MG
     Route: 048
  13. PHENIL [Concomitant]
     Indication: Prophylaxis
     Route: 042
     Dates: start: 20240228
  14. ESCITALOPRAM [Concomitant]
     Active Substance: ESCITALOPRAM OXALATE
     Indication: Panic disorder
     Dosage: 10MG
     Route: 048
  15. LENOGRASTIM [Concomitant]
     Active Substance: LENOGRASTIM
     Indication: Neutropenia
     Dosage: INJ 250MCG
     Route: 042
     Dates: start: 20240229, end: 20240307
  16. LENOGRASTIM [Concomitant]
     Active Substance: LENOGRASTIM
     Indication: Neutropenia
     Dosage: INJ 250MCG
     Route: 042
     Dates: start: 20240310, end: 20240310
  17. NOXAFIL [Concomitant]
     Active Substance: POSACONAZOLE
     Indication: Antibiotic prophylaxis
     Dosage: GASTRO RESISTANT 100MG
     Route: 048
     Dates: start: 20240229
  18. K-CAB [Concomitant]
     Indication: Dyspepsia
     Dosage: ODT 50MG
     Route: 048
     Dates: start: 20240301
  19. Yuhan Dexamethasone [Concomitant]
     Indication: Prophylaxis
     Dosage: INJ 5MG/1ML/AM
     Route: 042
     Dates: start: 20240228, end: 20240301
  20. AMOSARTAN [Concomitant]
     Indication: Hypertension
     Dosage: 5/100MG
     Route: 048
     Dates: start: 20240304
  21. MAXIPIME [Concomitant]
     Active Substance: CEFEPIME HYDROCHLORIDE
     Indication: Antibiotic prophylaxis
     Dosage: INJ 1G
     Route: 042
     Dates: start: 20240408

REACTIONS (3)
  - Hypophagia [Recovering/Resolving]
  - Anaemia [Recovered/Resolved]
  - Asthenia [Recovering/Resolving]

NARRATIVE: CASE EVENT DATE: 20240408
